FAERS Safety Report 6720297-2 (Version None)
Quarter: 2010Q2

REPORT INFORMATION
  Report Type: 
  Country: None (occurrence: None)
  Receive Date: 20100511
  Receipt Date: 20100505
  Transmission Date: 20101027
  Serious: Yes (Hospitalization)
  Sender: FDA-Public Use
  Company Number: CA-PFIZER INC-2010056734

PATIENT
  Age: 93 Year
  Sex: Male

DRUGS (2)
  1. DEPO-MEDROL [Suspect]
     Dosage: UNK
  2. ASPIRIN [Concomitant]
     Dosage: UNK

REACTIONS (6)
  - ADMINISTRATION SITE PAIN [None]
  - ASTHENIA [None]
  - DECREASED APPETITE [None]
  - FATIGUE [None]
  - INFLUENZA [None]
  - WEIGHT DECREASED [None]
